FAERS Safety Report 5129361-5 (Version None)
Quarter: 2006Q4

REPORT INFORMATION
  Report Type: 
  Country: None (occurrence: None)
  Receive Date: 20061018
  Receipt Date: 20060816
  Transmission Date: 20070319
  Serious: Yes (Other)
  Sender: FDA-Public Use
  Company Number: PHEH2006US10538

PATIENT
  Age: 33 Year
  Sex: Female
  Weight: 87.528 kg

DRUGS (3)
  1. LAMISIL [Suspect]
     Indication: NAIL TINEA
     Dosage: UNK, UNK
     Route: 048
     Dates: start: 20050901, end: 20051201
  2. ZANTAC [Concomitant]
     Dosage: 150 MG, TID
     Route: 048
  3. IBUPROFEN [Concomitant]
     Dosage: UNK, PRN
     Route: 048

REACTIONS (8)
  - ALANINE AMINOTRANSFERASE INCREASED [None]
  - ASPARTATE AMINOTRANSFERASE INCREASED [None]
  - CHOLELITHIASIS [None]
  - CHOLELITHOTOMY [None]
  - CONDITION AGGRAVATED [None]
  - DISEASE RECURRENCE [None]
  - HEPATIC STEATOSIS [None]
  - MUSCULOSKELETAL PAIN [None]
